FAERS Safety Report 16014728 (Version 1)
Quarter: 2019Q1

REPORT INFORMATION
  Report Type: Spontaneous
  Country: US (occurrence: US)
  Receive Date: 20190227
  Receipt Date: 20190227
  Transmission Date: 20190418
  Serious: No
  Sender: FDA-Public Use
  Company Number: US-JNJFOC-20190206572

PATIENT
  Sex: Female
  Weight: 74.39 kg

DRUGS (2)
  1. ZYRTEC [Suspect]
     Active Substance: CETIRIZINE HYDROCHLORIDE
     Route: 048
  2. ZYRTEC [Suspect]
     Active Substance: CETIRIZINE HYDROCHLORIDE
     Indication: ALLERGIC RESPIRATORY DISEASE
     Route: 048

REACTIONS (2)
  - Product blister packaging issue [Unknown]
  - Overdose [Unknown]
